FAERS Safety Report 11331071 (Version 2)
Quarter: 2015Q3

REPORT INFORMATION
  Report Type: Spontaneous
  Country: UY (occurrence: UY)
  Receive Date: 20150803
  Receipt Date: 20150819
  Transmission Date: 20151125
  Serious: Yes (Other)
  Sender: FDA-Public Use
  Company Number: UY-BAYER-2015-368182

PATIENT
  Age: 41 Year
  Sex: Female

DRUGS (1)
  1. MIRENA [Suspect]
     Active Substance: LEVONORGESTREL
     Dosage: 20 MCG/24HR, CONT
     Route: 015
     Dates: start: 20150615

REACTIONS (6)
  - Swelling [Recovered/Resolved]
  - Infection [Recovered/Resolved]
  - Menorrhagia [Not Recovered/Not Resolved]
  - Oral mucosal blistering [Recovered/Resolved]
  - Menorrhagia [Recovering/Resolving]
  - Haemorrhagic anaemia [Not Recovered/Not Resolved]

NARRATIVE: CASE EVENT DATE: 201507
